FAERS Safety Report 5360863-2 (Version None)
Quarter: 2007Q2

REPORT INFORMATION
  Report Type: 
  Country: None (occurrence: None)
  Receive Date: 20070530
  Receipt Date: 20070208
  Transmission Date: 20071010
  Serious: No
  Sender: FDA-Public Use
  Company Number: 2007PV029819

PATIENT
  Age: 42 Year
  Sex: Female
  Weight: 114.5332 kg

DRUGS (4)
  1. BYETTA [Suspect]
     Indication: DIABETES MELLITUS NON-INSULIN-DEPENDENT
     Dosage: 5;10;5 MCG;BID;SC
     Route: 058
     Dates: start: 20061229, end: 20070129
  2. BYETTA [Suspect]
     Indication: DIABETES MELLITUS NON-INSULIN-DEPENDENT
     Dosage: 5;10;5 MCG;BID;SC
     Route: 058
     Dates: start: 20060101
  3. BYETTA [Suspect]
     Indication: DIABETES MELLITUS NON-INSULIN-DEPENDENT
     Dosage: 5;10;5 MCG;BID;SC
     Route: 058
     Dates: start: 20070129
  4. METFORMIN HCL [Concomitant]

REACTIONS (8)
  - BLOOD CHOLESTEROL DECREASED [None]
  - BLOOD TRIGLYCERIDES DECREASED [None]
  - DECREASED APPETITE [None]
  - HIGH DENSITY LIPOPROTEIN DECREASED [None]
  - NAUSEA [None]
  - TOTAL CHOLESTEROL/HDL RATIO ABNORMAL [None]
  - VERY LOW DENSITY LIPOPROTEIN DECREASED [None]
  - WEIGHT DECREASED [None]
